FAERS Safety Report 7841924-2 (Version None)
Quarter: 2011Q4

REPORT INFORMATION
  Report Type: 
  Country: None (occurrence: None)
  Receive Date: 20111025
  Receipt Date: 20111020
  Transmission Date: 20120403
  Serious: Yes (Hospitalization)
  Sender: FDA-Public Use
  Company Number: US-BRISTOL-MYERS SQUIBB COMPANY-14325799

PATIENT
  Age: 55 Year
  Sex: Male
  Weight: 60 kg

DRUGS (1)
  1. CISPLATIN [Suspect]
     Indication: HEAD AND NECK CANCER
     Dosage: 100MG/M2=190MG IVPB IN 1000ML NS OVER 2HRS ON DAY 1
     Route: 042
     Dates: start: 20080701, end: 20080722

REACTIONS (4)
  - DYSPHAGIA [None]
  - OROPHARYNGEAL PAIN [None]
  - STOMATITIS [None]
  - WEIGHT DECREASED [None]
